FAERS Safety Report 5675031-4 (Version None)
Quarter: 2008Q1

REPORT INFORMATION
  Report Type: 
  Country: None (occurrence: None)
  Receive Date: 20080320
  Receipt Date: 20080317
  Transmission Date: 20080703
  Serious: Yes (Other)
  Sender: FDA-Public Use
  Company Number: US-ALLERGAN-0803180US

PATIENT
  Sex: Male

DRUGS (1)
  1. ALPHAGAN [Suspect]
     Indication: GLAUCOMA
     Route: 047
     Dates: start: 19980101

REACTIONS (3)
  - MIOSIS [None]
  - NIGHT BLINDNESS [None]
  - VISUAL DISTURBANCE [None]
